FAERS Safety Report 9678122 (Version 1)
Quarter: 2013Q4

REPORT INFORMATION
  Report Type: Spontaneous
  Country: GB (occurrence: None)
  Receive Date: 20131106
  Receipt Date: 20131106
  Transmission Date: 20140711
  Serious: Yes (Death, Other)
  Sender: FDA-Public Use
  Company Number: FK201304816

PATIENT
  Sex: Female

DRUGS (2)
  1. VANCOMYCIN [Suspect]
     Indication: STAPHYLOCOCCAL SEPSIS
  2. DAPTOMYCIN [Suspect]
     Indication: OFF LABEL USE
     Dates: end: 201303

REACTIONS (2)
  - Staphylococcal sepsis [None]
  - Skin mass [None]
